FAERS Safety Report 9766083 (Version 1)
Quarter: 2013Q4

REPORT INFORMATION
  Report Type: Spontaneous
  Country: US (occurrence: None)
  Receive Date: 20131213
  Receipt Date: 20131213
  Transmission Date: 20140711
  Serious: Yes (Other)
  Sender: FDA-Public Use
  Company Number: 2013SA030225

PATIENT
  Age: 72 Year
  Sex: Male

DRUGS (1)
  1. ICY HOT BACK PATCH [Suspect]
     Indication: BACK PAIN
     Dosage: ;UNKNOWN ; UNKNOWN
     Dates: start: 20090302

REACTIONS (3)
  - Application site burn [None]
  - Blister [None]
  - Feeling hot [None]
